FAERS Safety Report 6793609-1 (Version None)
Quarter: 2010Q2

REPORT INFORMATION
  Report Type: 
  Country: None (occurrence: None)
  Receive Date: 20100624
  Receipt Date: 20081215
  Transmission Date: 20101027
  Serious: No
  Sender: FDA-Public Use
  Company Number: US-PFIZER INC-2008156223

PATIENT
  Sex: Female
  Weight: 54.422 kg

DRUGS (3)
  1. XALATAN [Suspect]
     Indication: GLAUCOMA
     Dosage: FREQUENCY: HS, EVERY DAY;
     Dates: start: 20080201
  2. CYMBALTA [Interacting]
  3. DRUG, UNSPECIFIED [Concomitant]
     Dosage: UNK

REACTIONS (2)
  - DRUG INTERACTION [None]
  - INTRAOCULAR PRESSURE INCREASED [None]
